FAERS Safety Report 19075192 (Version 1)
Quarter: 2021Q1

REPORT INFORMATION
  Report Type: Spontaneous
  Country: US (occurrence: US)
  Receive Date: 20210330
  Receipt Date: 20210330
  Transmission Date: 20210420
  Serious: No
  Sender: FDA-Public Use
  Company Number: US-ROCHE-2540223

PATIENT
  Sex: Male

DRUGS (3)
  1. ERIVEDGE [Suspect]
     Active Substance: VISMODEGIB
     Indication: BASAL CELL CARCINOMA
     Dosage: 150MG ONCE DAILY
     Route: 065
     Dates: start: 20190819
  2. FLUOCINONIDE. [Concomitant]
     Active Substance: FLUOCINONIDE
  3. CLINDAMYCIN. [Concomitant]
     Active Substance: CLINDAMYCIN

REACTIONS (6)
  - Taste disorder [Unknown]
  - Ingrown hair [Unknown]
  - Anosmia [Unknown]
  - Folliculitis [Unknown]
  - Muscle spasms [Recovered/Resolved]
  - Alopecia [Unknown]
